FAERS Safety Report 19396296 (Version 1)
Quarter: 2021Q2

REPORT INFORMATION
  Report Type: Report from Study
  Country: AT (occurrence: AT)
  Receive Date: 20210610
  Receipt Date: 20210610
  Transmission Date: 20210717
  Serious: Yes (Other)
  Sender: FDA-Public Use
  Company Number: AT-BIOGEN-2021BI01018630

PATIENT
  Age: 61 Year
  Sex: Female

DRUGS (3)
  1. TECFIDERA [Suspect]
     Active Substance: DIMETHYL FUMARATE
     Indication: MULTIPLE SCLEROSIS
     Route: 048
     Dates: start: 20161101
  2. SARS?COV?2 VACCINE [Concomitant]
     Indication: COVID-19 PROPHYLAXIS
     Route: 065
     Dates: start: 20210505
  3. TECFIDERA [Suspect]
     Active Substance: DIMETHYL FUMARATE
     Route: 065
     Dates: start: 201802

REACTIONS (3)
  - Brain injury [Recovered/Resolved]
  - Low density lipoprotein abnormal [Unknown]
  - Blood triglycerides abnormal [Unknown]

NARRATIVE: CASE EVENT DATE: 20210521
